FAERS Safety Report 19474259 (Version 2)
Quarter: 2021Q4

REPORT INFORMATION
  Report Type: Other
  Country: US (occurrence: None)
  Receive Date: 20210630
  Receipt Date: 20211124
  Transmission Date: 20220303
  Serious: Yes (Other)
  Sender: FDA-Public Use
  Company Number: US-ROCHE-2802939

PATIENT
  Age: 71 Year
  Sex: Female
  Weight: 66 kg

DRUGS (24)
  1. OCREVUS [Suspect]
     Active Substance: OCRELIZUMAB
     Indication: Relapsing-remitting multiple sclerosis
     Dosage: PRESCRIBED WITH 300 MG, DAY 1 AND 15 LATER 600 MG, EVERY 6 MONTHS
     Route: 042
     Dates: start: 20201203, end: 20201217
  2. KLONOPIN [Suspect]
     Active Substance: CLONAZEPAM
     Indication: Product used for unknown indication
     Dosage: TAKE 1 TABLET
     Route: 048
     Dates: start: 20190412
  3. ASPIRIN [Concomitant]
     Active Substance: ASPIRIN
     Route: 048
  4. NEURONTIN [Concomitant]
     Active Substance: GABAPENTIN
     Dosage: TAKE 1 CAPSULE
     Route: 048
     Dates: start: 20191202
  5. ZOLOFT [Concomitant]
     Active Substance: SERTRALINE HYDROCHLORIDE
     Dosage: TAKE 1 TABLET
     Route: 048
     Dates: start: 20200330
  6. ONDANSETRON [Concomitant]
     Active Substance: ONDANSETRON
     Dosage: TAKE 1 TABLET
     Route: 048
     Dates: start: 20190417
  7. LIPITOR [Concomitant]
     Active Substance: ATORVASTATIN CALCIUM
     Dosage: TAKE 1 TABLET
     Route: 048
     Dates: start: 20200326
  8. APRESOLINE HYDROCHLORIDE [Concomitant]
     Active Substance: HYDRALAZINE HYDROCHLORIDE
     Dosage: TAKE 1 TABLET 3 TIMES
     Route: 048
     Dates: start: 20200508
  9. ZESTRIL [Concomitant]
     Active Substance: LISINOPRIL
     Dosage: TAKE 1 TABLET
     Route: 048
     Dates: start: 20200509
  10. REQUIP [Concomitant]
     Active Substance: ROPINIROLE HYDROCHLORIDE
     Dosage: TAKE 0.25 MG 3 TIMES
     Route: 048
  11. MIRAPEX [Concomitant]
     Active Substance: PRAMIPEXOLE DIHYDROCHLORIDE
     Dosage: TAKE 1 TABLET
     Route: 048
     Dates: start: 20200424
  12. CARTIA XT [Concomitant]
     Active Substance: DILTIAZEM HYDROCHLORIDE
     Dosage: TAKE 1 CAPSULE
     Route: 048
     Dates: start: 20200129
  13. BACTROBAN [Concomitant]
     Active Substance: MUPIROCIN\MUPIROCIN CALCIUM
     Dosage: APPLY TOPICALLY DAILY
     Route: 061
     Dates: start: 20191120
  14. FOLVITE [Concomitant]
     Active Substance: FOLIC ACID
     Dosage: TAKE 1 MG
     Route: 048
     Dates: start: 20191008
  15. GLYCOLAX [Concomitant]
     Active Substance: POLYETHYLENE GLYCOL 3350
     Dosage: TAKE 17 G BY MOUTH 2 TIMES
     Route: 048
     Dates: start: 20200508
  16. AZULFIDINE [Concomitant]
     Active Substance: SULFASALAZINE
     Dosage: TAKE 500 MG BY MOUTH 4 TIMES
     Route: 048
  17. LIORESAL [Concomitant]
     Active Substance: BACLOFEN
     Dosage: TAKE 1 TABLET
     Route: 048
     Dates: start: 20200129
  18. PROTONIX [Concomitant]
     Active Substance: PANTOPRAZOLE SODIUM
     Route: 048
     Dates: start: 20200129
  19. MONTELUKAST [Concomitant]
     Active Substance: MONTELUKAST SODIUM
     Dosage: NIGHTLY
     Route: 048
  20. ALBUTEROL [Concomitant]
     Active Substance: ALBUTEROL
     Indication: Dyspnoea
     Dosage: ONE TO TWO PUFFS EVERY FOUR HOURS AS NEEDED
     Route: 055
  21. ALBUTEROL [Concomitant]
     Active Substance: ALBUTEROL
     Indication: Wheezing
  22. ZYRTEC (UNITED STATES) [Concomitant]
     Indication: Hypersensitivity
     Route: 048
  23. VITAMIN B12 [Concomitant]
     Active Substance: CYANOCOBALAMIN
     Indication: Anaemia
     Route: 048
  24. VITAMIN C [Concomitant]
     Active Substance: ASCORBIC ACID
     Route: 048

REACTIONS (1)
  - Lung neoplasm malignant [Unknown]

NARRATIVE: CASE EVENT DATE: 20210301
